FAERS Safety Report 7013788-0 (Version None)
Quarter: 2010Q3

REPORT INFORMATION
  Report Type: 
  Country: None (occurrence: None)
  Receive Date: 20100924
  Receipt Date: 20100913
  Transmission Date: 20110219
  Serious: Yes (Other)
  Sender: FDA-Public Use
  Company Number: US-WYE-H17693610

PATIENT
  Sex: Female

DRUGS (4)
  1. EFFEXOR XR [Suspect]
     Indication: DEPRESSION
     Route: 048
     Dates: start: 20050101
  2. EFFEXOR XR [Suspect]
     Indication: ANXIETY
  3. KLONOPIN [Concomitant]
     Indication: HYPERTENSION
  4. LOPRESSOR [Concomitant]
     Dosage: 2 MG, FREQUENCY UNKNOWN

REACTIONS (1)
  - BREAST CANCER [None]
